FAERS Safety Report 25965896 (Version 2)
Quarter: 2025Q4

REPORT INFORMATION
  Report Type: Report from Study
  Country: US (occurrence: US)
  Receive Date: 20251027
  Receipt Date: 20251129
  Transmission Date: 20260118
  Serious: Yes (Other)
  Sender: ABBVIE
  Company Number: US-ABBVIE-6516661

PATIENT
  Age: 55 Year
  Sex: Male

DRUGS (2)
  1. QULIPTA [Suspect]
     Active Substance: ATOGEPANT
     Indication: Product used for unknown indication
     Route: 048
  2. QULIPTA [Suspect]
     Active Substance: ATOGEPANT
     Indication: Product used for unknown indication
     Dosage: THE BATCH/ LOT NUMBER WAS 60
     Route: 048
     Dates: start: 20251025

REACTIONS (3)
  - Cholecystectomy [Unknown]
  - Renal pain [Unknown]
  - Headache [Unknown]

NARRATIVE: CASE EVENT DATE: 20100101
